FAERS Safety Report 9467848 (Version 1)
Quarter: 2013Q3

REPORT INFORMATION
  Report Type: Spontaneous
  Country: US (occurrence: None)
  Receive Date: 20130819
  Receipt Date: 20130819
  Transmission Date: 20140515
  Serious: No
  Sender: FDA-Public Use
  Company Number: None

PATIENT
  Sex: 0

DRUGS (2)
  1. VITAMIN D [Suspect]
     Dosage: STRENGTH 5,000 UNITS   TABLET  ORAL
     Route: 048
  2. VITAMIN D [Suspect]
     Dosage: STRENGTH 1,000 UNITS  TABLET ORAL
     Route: 048

REACTIONS (5)
  - Medication error [None]
  - Drug dispensing error [None]
  - Drug dispensing error [None]
  - Wrong drug administered [None]
  - Incorrect dose administered [None]
